FAERS Safety Report 7010867-9 (Version None)
Quarter: 2010Q3

REPORT INFORMATION
  Report Type: 
  Country: None (occurrence: None)
  Receive Date: 20100923
  Receipt Date: 20100923
  Transmission Date: 20110219
  Serious: Yes (Other)
  Sender: FDA-Public Use
  Company Number: None

PATIENT
  Age: 48 Year
  Sex: Female
  Weight: 72.5755 kg

DRUGS (1)
  1. DOCETAXEL [Suspect]
     Dosage: 75 MG/M2 Q 3 WEEKS IV DRIP
     Route: 041
     Dates: start: 20070914, end: 20071231

REACTIONS (1)
  - ALOPECIA [None]
